FAERS Safety Report 19901227 (Version 2)
Quarter: 2021Q4

REPORT INFORMATION
  Report Type: Spontaneous
  Country: US (occurrence: US)
  Receive Date: 20210930
  Receipt Date: 20211101
  Transmission Date: 20220303
  Serious: No
  Sender: FDA-Public Use
  Company Number: US-JNJFOC-20210932086

PATIENT

DRUGS (1)
  1. VELETRI [Suspect]
     Active Substance: EPOPROSTENOL
     Indication: Product used for unknown indication
     Route: 055

REACTIONS (3)
  - Mechanical ventilation [Unknown]
  - Off label use [Unknown]
  - Incorrect route of product administration [Unknown]
